FAERS Safety Report 10669256 (Version 4)
Quarter: 2015Q3

REPORT INFORMATION
  Report Type: Spontaneous
  Country: US (occurrence: US)
  Receive Date: 20141222
  Receipt Date: 20150729
  Transmission Date: 20151125
  Serious: Yes (Life-Threatening, Hospitalization, Other)
  Sender: FDA-Public Use
  Company Number: PHHY2014US141610

PATIENT
  Age: 60 Year
  Sex: Male

DRUGS (32)
  1. BACLOFEN INTRATHECAL [Suspect]
     Active Substance: BACLOFEN
     Indication: MUSCLE SPASTICITY
     Dosage: 81.38 UG, QD
     Route: 037
  2. SPIRONOLACTONE. [Suspect]
     Active Substance: SPIRONOLACTONE
     Indication: PRODUCT USED FOR UNKNOWN INDICATION
     Dosage: UNK
     Route: 065
  3. CITALOPRAM [Suspect]
     Active Substance: CITALOPRAM HYDROBROMIDE
     Indication: PRODUCT USED FOR UNKNOWN INDICATION
     Dosage: UNK
     Route: 065
  4. INSULIN ASPART [Suspect]
     Active Substance: INSULIN ASPART
     Indication: PRODUCT USED FOR UNKNOWN INDICATION
     Dosage: UNK
     Route: 065
  5. INSULIN DETEMIR [Suspect]
     Active Substance: INSULIN DETEMIR
     Indication: PRODUCT USED FOR UNKNOWN INDICATION
     Dosage: UNK
     Route: 065
  6. OXYCODONE [Suspect]
     Active Substance: OXYCODONE
     Indication: PAIN
     Dosage: UNK
     Route: 065
  7. MUPIROCIN. [Suspect]
     Active Substance: MUPIROCIN
     Dosage: 25 DF, PRN
     Route: 061
  8. FUROSEMIDE. [Suspect]
     Active Substance: FUROSEMIDE
     Indication: PRODUCT USED FOR UNKNOWN INDICATION
     Dosage: UNK
     Route: 065
  9. PROPRANOLOL [Suspect]
     Active Substance: PROPRANOLOL\PROPRANOLOL HYDROCHLORIDE
     Indication: PRODUCT USED FOR UNKNOWN INDICATION
     Dosage: UNK
     Route: 065
  10. MORPHINE [Suspect]
     Active Substance: MORPHINE
     Dosage: 0.292 UG, QD
     Route: 037
     Dates: start: 20141023
  11. INSULIN ASPART [Suspect]
     Active Substance: INSULIN ASPART
     Dosage: 10 U, TID (WITH EACH MEAL)
     Route: 058
  12. CITALOPRAM [Suspect]
     Active Substance: CITALOPRAM HYDROBROMIDE
     Dosage: 40 MG, QD DAILY (AT BEDTIME)
     Route: 048
  13. PREGABALIN. [Suspect]
     Active Substance: PREGABALIN
     Dosage: 25 MG, TID
     Route: 048
  14. OXYCODONE [Suspect]
     Active Substance: OXYCODONE
     Dosage: 2 DF, QD
     Route: 065
  15. OXYCODONE [Suspect]
     Active Substance: OXYCODONE
     Dosage: 5 MG, PRN (EVERY 6 HOURS)
     Route: 048
  16. MUPIROCIN. [Suspect]
     Active Substance: MUPIROCIN
     Indication: SKIN DISORDER
     Dosage: UNK
     Route: 065
  17. INSULIN DETEMIR [Suspect]
     Active Substance: INSULIN DETEMIR
     Dosage: 30 U, UNK (30 UNITS AT BEDTIME)
     Route: 058
  18. POTASSIUM CHLORIDE. [Suspect]
     Active Substance: POTASSIUM CHLORIDE
     Indication: PRODUCT USED FOR UNKNOWN INDICATION
     Dosage: UNK
     Route: 065
  19. POTASSIUM CHLORIDE. [Suspect]
     Active Substance: POTASSIUM CHLORIDE
     Dosage: 20 MEQ, QD (SUSTAINED RELEASE TABLET) WITH EVENING MEAL
     Route: 065
  20. FUROSEMIDE. [Suspect]
     Active Substance: FUROSEMIDE
     Dosage: 40 MG, BID
     Route: 048
  21. GLUCAGON. [Suspect]
     Active Substance: GLUCAGON
     Indication: HYPOGLYCAEMIA
     Dosage: UNK
     Route: 065
  22. PREGABALIN. [Suspect]
     Active Substance: PREGABALIN
     Indication: PRODUCT USED FOR UNKNOWN INDICATION
     Dosage: UNK
     Route: 065
  23. OXYCODONE AND ACETAMINOPHEN [Concomitant]
     Active Substance: ACETAMINOPHEN\OXYCODONE\OXYCODONE HYDROCHLORIDE
     Indication: PRODUCT USED FOR UNKNOWN INDICATION
     Dosage: 1 DF, PRN (EVERY 4 HOURS AS NEEDED)
     Route: 048
  24. BACLOFEN INTRATHECAL [Suspect]
     Active Substance: BACLOFEN
     Dosage: 1.08 UG, QD
     Route: 037
     Dates: start: 20141023
  25. SPIRONOLACTONE. [Suspect]
     Active Substance: SPIRONOLACTONE
     Dosage: 25 MG, BID
     Route: 048
  26. PROPRANOLOL [Suspect]
     Active Substance: PROPRANOLOL\PROPRANOLOL HYDROCHLORIDE
     Dosage: 20 MG, BID (TWICE DAILY)
     Route: 048
  27. MORPHINE [Suspect]
     Active Substance: MORPHINE
     Indication: MUSCLE SPASTICITY
     Dosage: 21.93 UG, QD
     Route: 037
  28. LACTULOSE. [Suspect]
     Active Substance: LACTULOSE
     Indication: PRODUCT USED FOR UNKNOWN INDICATION
     Dosage: 45 ML, QD (10 GRAM/15 ML, IN THE MORNING)
     Route: 048
  29. OXYCODONE [Suspect]
     Active Substance: OXYCODONE
     Dosage: 5 MG, PRN (EVERY 4 HOURS) DOSE INCREASED
     Route: 048
  30. PROCHLORPERAZINE MALEATE. [Suspect]
     Active Substance: PROCHLORPERAZINE MALEATE
     Indication: PRODUCT USED FOR UNKNOWN INDICATION
     Dosage: UNK
     Route: 065
  31. PROCHLORPERAZINE MALEATE. [Suspect]
     Active Substance: PROCHLORPERAZINE MALEATE
     Dosage: 5 MG, AS NEEDED (EVERY 6 HOURS)
     Route: 048
  32. GLUCAGON. [Suspect]
     Active Substance: GLUCAGON
     Dosage: 1 MG, UNK
     Route: 058

REACTIONS (26)
  - Osteopenia [Recovering/Resolving]
  - Post laminectomy syndrome [Recovering/Resolving]
  - Osteoporosis [Recovering/Resolving]
  - Therapeutic response decreased [Recovering/Resolving]
  - Back pain [Recovering/Resolving]
  - Drug screen positive [Recovering/Resolving]
  - General physical health deterioration [Recovering/Resolving]
  - Chest pain [Recovering/Resolving]
  - Hypomagnesaemia [Recovered/Resolved]
  - Contusion [Recovering/Resolving]
  - Pain [Recovering/Resolving]
  - Accidental overdose [Recovering/Resolving]
  - Mental status changes [Recovering/Resolving]
  - Coeliac disease [Recovering/Resolving]
  - Type 2 diabetes mellitus [Recovering/Resolving]
  - Depression [Recovering/Resolving]
  - Diabetic neuropathy [Recovering/Resolving]
  - Portal hypertension [Recovering/Resolving]
  - Dyslipidaemia [Recovering/Resolving]
  - Hypertension [Recovering/Resolving]
  - Respiratory depression [Recovering/Resolving]
  - Hepatic encephalopathy [Recovering/Resolving]
  - Hypophosphataemia [Recovered/Resolved]
  - Hepatic cirrhosis [Recovering/Resolving]
  - Thrombocytopenia [Recovering/Resolving]
  - No therapeutic response [Recovering/Resolving]

NARRATIVE: CASE EVENT DATE: 20141024
